FAERS Safety Report 11553436 (Version 1)
Quarter: 2015Q3

REPORT INFORMATION
  Report Type: Spontaneous
  Country: US (occurrence: US)
  Receive Date: 20150903
  Receipt Date: 20150903
  Transmission Date: 20151125
  Serious: No
  Sender: FDA-Public Use
  Company Number: US-ELI_LILLY_AND_COMPANY-US201006006538

PATIENT
  Sex: Female

DRUGS (1)
  1. HUMALOG [Suspect]
     Active Substance: INSULIN LISPRO
     Indication: GESTATIONAL DIABETES
     Dates: start: 20100524

REACTIONS (5)
  - Exposure during pregnancy [Not Recovered/Not Resolved]
  - Injection site rash [Unknown]
  - Pruritus [Unknown]
  - Instillation site erythema [Unknown]
  - Rash pruritic [Unknown]
